FAERS Safety Report 10203180 (Version 3)
Quarter: 2014Q4

REPORT INFORMATION
  Report Type: Report from Study
  Country: US (occurrence: US)
  Receive Date: 20140529
  Receipt Date: 20141106
  Transmission Date: 20150528
  Serious: Yes (Hospitalization)
  Sender: FDA-Public Use
  Company Number: US-BIOGENIDEC-2014BI049753

PATIENT
  Age: 49 Year
  Sex: Female

DRUGS (1)
  1. TYSABRI [Suspect]
     Active Substance: NATALIZUMAB
     Indication: MULTIPLE SCLEROSIS
     Route: 042
     Dates: start: 201307, end: 201405

REACTIONS (13)
  - Loss of consciousness [Recovered/Resolved]
  - Hallucination [Not Recovered/Not Resolved]
  - Nephropathy [Not Recovered/Not Resolved]
  - Vomiting [Recovered/Resolved]
  - Gait disturbance [Not Recovered/Not Resolved]
  - Impaired gastric emptying [Not Recovered/Not Resolved]
  - Pain [Recovered/Resolved]
  - Nausea [Unknown]
  - Multiple sclerosis relapse [Unknown]
  - Brain oedema [Recovered/Resolved]
  - Hypotension [Unknown]
  - Poisoning [Recovered/Resolved]
  - Memory impairment [Not Recovered/Not Resolved]

NARRATIVE: CASE EVENT DATE: 201308
